FAERS Safety Report 7980062-5 (Version None)
Quarter: 2011Q4

REPORT INFORMATION
  Report Type: 
  Country: None (occurrence: None)
  Receive Date: 20111214
  Receipt Date: 20111212
  Transmission Date: 20120403
  Serious: Yes (Hospitalization, Other)
  Sender: FDA-Public Use
  Company Number: US-TEVA-313280USA

PATIENT
  Age: 26 Year
  Sex: Female

DRUGS (2)
  1. HALOPERIDOL [Suspect]
     Indication: AGITATION
     Route: 042
  2. BETAMETHASONE [Suspect]
     Indication: PREMATURE LABOUR

REACTIONS (2)
  - HYPERAMMONAEMIA [None]
  - COMA [None]
